FAERS Safety Report 11256512 (Version 1)
Quarter: 2015Q3

REPORT INFORMATION
  Report Type: Spontaneous
  Country: US (occurrence: US)
  Receive Date: 20150709
  Receipt Date: 20150709
  Transmission Date: 20151125
  Serious: No
  Sender: FDA-Public Use
  Company Number: US-PURDUE-USA-2014-0117239

PATIENT
  Age: 56 Year
  Sex: Female

DRUGS (1)
  1. BUTRANS [Suspect]
     Active Substance: BUPRENORPHINE
     Indication: BACK PAIN
     Dosage: 10 MCG/HR, UNK
     Route: 062
     Dates: start: 20140903

REACTIONS (6)
  - Drug ineffective [Not Recovered/Not Resolved]
  - Abasia [Unknown]
  - Pain in extremity [Not Recovered/Not Resolved]
  - Muscular weakness [Not Recovered/Not Resolved]
  - Tremor [Unknown]
  - Back pain [Unknown]

NARRATIVE: CASE EVENT DATE: 20140905
